FAERS Safety Report 19229302 (Version 1)
Quarter: 2021Q2

REPORT INFORMATION
  Report Type: Spontaneous
  Country: DE (occurrence: DE)
  Receive Date: 20210507
  Receipt Date: 20210507
  Transmission Date: 20210717
  Serious: Yes (Other)
  Sender: FDA-Public Use
  Company Number: DE-SA-2021SA149720

PATIENT
  Sex: Male
  Weight: 74 kg

DRUGS (1)
  1. DUPIXENT [Suspect]
     Active Substance: DUPILUMAB
     Dosage: 1 DF, QM
     Dates: start: 202004, end: 202103

REACTIONS (3)
  - Varicella zoster virus infection [Not Recovered/Not Resolved]
  - Product use issue [Unknown]
  - Eczema herpeticum [Not Recovered/Not Resolved]

NARRATIVE: CASE EVENT DATE: 202004
